FAERS Safety Report 6621096-2 (Version None)
Quarter: 2010Q1

REPORT INFORMATION
  Report Type: 
  Country: None (occurrence: None)
  Receive Date: 20100309
  Receipt Date: 20100225
  Transmission Date: 20100710
  Serious: Yes (Hospitalization)
  Sender: FDA-Public Use
  Company Number: B0637879A

PATIENT
  Age: 21 Year
  Sex: Female

DRUGS (4)
  1. MALARONE [Suspect]
     Indication: PLASMODIUM FALCIPARUM INFECTION
     Dosage: 4TABS PER DAY
  2. PROMETHAZINE [Concomitant]
     Indication: VOMITING
  3. FLUIDS [Concomitant]
     Route: 042
  4. CIPROFLOXACIN [Concomitant]
     Route: 048

REACTIONS (25)
  - BLOOD LACTATE DEHYDROGENASE INCREASED [None]
  - CHEST PAIN [None]
  - CHILLS [None]
  - CONDITION AGGRAVATED [None]
  - DRUG RESISTANCE [None]
  - DYSKINESIA [None]
  - DYSPHEMIA [None]
  - DYSPNOEA [None]
  - DYSTONIA [None]
  - EYELID DISORDER [None]
  - GASTROENTERITIS VIRAL [None]
  - HAEMOGLOBIN DECREASED [None]
  - MALAISE [None]
  - MOVEMENT DISORDER [None]
  - MUSCLE TWITCHING [None]
  - MUSCULAR WEAKNESS [None]
  - MYALGIA [None]
  - NEUROLOGICAL SYMPTOM [None]
  - PLASMODIUM FALCIPARUM INFECTION [None]
  - PLATELET COUNT DECREASED [None]
  - PYREXIA [None]
  - SLUGGISHNESS [None]
  - SPEECH DISORDER [None]
  - TREATMENT FAILURE [None]
  - WHITE BLOOD CELL COUNT DECREASED [None]
